FAERS Safety Report 12344341 (Version 2)
Quarter: 2016Q2

REPORT INFORMATION
  Report Type: Spontaneous
  Country: US (occurrence: US)
  Receive Date: 20160507
  Receipt Date: 20160630
  Transmission Date: 20160815
  Serious: Yes (Hospitalization)
  Sender: FDA-Public Use
  Company Number: US-JNJFOC-20160426436

PATIENT
  Age: 39 Year
  Sex: Female

DRUGS (6)
  1. XARELTO [Suspect]
     Active Substance: RIVAROXABAN
     Indication: COAGULOPATHY
     Route: 048
     Dates: start: 20140123, end: 20150226
  2. XARELTO [Suspect]
     Active Substance: RIVAROXABAN
     Indication: HYPERCOAGULATION
     Route: 048
     Dates: start: 20140123, end: 20150226
  3. XARELTO [Suspect]
     Active Substance: RIVAROXABAN
     Indication: COAGULOPATHY
     Route: 048
     Dates: start: 201412, end: 2014
  4. XARELTO [Suspect]
     Active Substance: RIVAROXABAN
     Indication: COAGULOPATHY
     Route: 048
     Dates: end: 201506
  5. XARELTO [Suspect]
     Active Substance: RIVAROXABAN
     Indication: HYPERCOAGULATION
     Route: 048
     Dates: start: 201412, end: 2014
  6. XARELTO [Suspect]
     Active Substance: RIVAROXABAN
     Indication: HYPERCOAGULATION
     Route: 048
     Dates: end: 201506

REACTIONS (1)
  - Haemorrhagic transformation stroke [Unknown]

NARRATIVE: CASE EVENT DATE: 20150614
